FAERS Safety Report 11808212 (Version 1)
Quarter: 2015Q4

REPORT INFORMATION
  Report Type: Spontaneous
  Country: US (occurrence: US)
  Receive Date: 20151207
  Receipt Date: 20151207
  Transmission Date: 20160305
  Serious: No
  Sender: FDA-Public Use
  Company Number: US-NOVELLABS-2015-US-000056

PATIENT
  Age: 69 Year
  Sex: Male
  Weight: 98.43 kg

DRUGS (2)
  1. 15 DRUGS [Concomitant]
  2. POLYETHYLENE GLYCOL 3350. [Suspect]
     Active Substance: POLYETHYLENE GLYCOL 3350
     Dosage: 17GM, TWICE A DAY,
     Route: 048
     Dates: start: 20150618

REACTIONS (2)
  - Oral mucosal blistering [Unknown]
  - Lip swelling [Unknown]

NARRATIVE: CASE EVENT DATE: 20150624
